FAERS Safety Report 10994968 (Version 2)
Quarter: 2015Q2

REPORT INFORMATION
  Report Type: Spontaneous
  Country: JP (occurrence: JP)
  Receive Date: 20150407
  Receipt Date: 20150623
  Transmission Date: 20150821
  Serious: Yes (Hospitalization, Other)
  Sender: FDA-Public Use
  Company Number: JP-GLAXOSMITHKLINE-JP2015JPN037679

PATIENT
  Age: 79 Year
  Sex: Female
  Weight: 70 kg

DRUGS (10)
  1. CANDESARTAN CILEXETIL. [Concomitant]
     Active Substance: CANDESARTAN CILEXETIL
     Dosage: 8 MG, QD
  2. VOTRIENT [Interacting]
     Active Substance: PAZOPANIB HYDROCHLORIDE
     Indication: RENAL CELL CARCINOMA
     Dosage: 800 MG, QD
     Route: 048
     Dates: start: 20150115, end: 20150131
  3. FLUITRAN [Concomitant]
     Active Substance: TRICHLORMETHIAZIDE
     Dosage: 1 MG, QD
  4. CARDENALIN [Concomitant]
     Active Substance: DOXAZOSIN MESYLATE
     Dosage: 2 MG, BID
  5. BAYASPIRIN [Suspect]
     Active Substance: ASPIRIN
     Indication: VASCULAR GRAFT
     Dosage: 100 MG, QD
     Route: 048
     Dates: start: 201006, end: 20150202
  6. MAGMITT [Concomitant]
     Active Substance: MAGNESIUM OXIDE
     Dosage: 330 MG, TID
  7. WARFARIN [Interacting]
     Active Substance: WARFARIN
     Indication: VASCULAR GRAFT
     Dosage: 4 MG, QD
     Route: 048
     Dates: start: 201006, end: 20150201
  8. ADALAT CC [Concomitant]
     Active Substance: NIFEDIPINE
     Dosage: 3 DF, UNK
  9. GASTER [Concomitant]
     Active Substance: FAMOTIDINE
     Dosage: 10 MG, QD
  10. BAYASPIRIN [Suspect]
     Active Substance: ASPIRIN
     Dosage: UNK
     Route: 048
     Dates: start: 20150206

REACTIONS (2)
  - Haemorrhage subcutaneous [Recovering/Resolving]
  - Pharyngeal haematoma [Recovering/Resolving]

NARRATIVE: CASE EVENT DATE: 20150130
